FAERS Safety Report 11273904 (Version 2)
Quarter: 2015Q3

REPORT INFORMATION
  Report Type: Spontaneous
  Country: DE (occurrence: DE)
  Receive Date: 20150715
  Receipt Date: 20150804
  Transmission Date: 20151125
  Serious: Yes (Hospitalization)
  Sender: FDA-Public Use
  Company Number: DE-TEVA-577880GER

PATIENT
  Age: 72 Year
  Sex: Male

DRUGS (11)
  1. XARELTO [Concomitant]
     Active Substance: RIVAROXABAN
     Indication: ATRIAL FIBRILLATION
     Dosage: 15 MILLIGRAM DAILY;
     Route: 048
     Dates: start: 201201
  2. 5-FLUOROURACIL [Suspect]
     Active Substance: FLUOROURACIL
     Indication: COLORECTAL CANCER
     Dosage: UP TO 15 MINUTES, DAY 1 OF 14-DAY CYCLE, LAST DOSE PRIOR TO SAE: 10-JUN-2015
     Route: 042
     Dates: start: 20150513
  3. ULTIBRO BREEZEHALER (ULTIBRO) [Concomitant]
     Indication: CHRONIC OBSTRUCTIVE PULMONARY DISEASE
     Route: 055
     Dates: start: 201504
  4. LOPERAMIDE [Concomitant]
     Active Substance: LOPERAMIDE
     Indication: DIARRHOEA
     Route: 048
     Dates: start: 20150605
  5. IRINOTECAN [Suspect]
     Active Substance: IRINOTECAN
     Indication: COLORECTAL CANCER
     Dosage: DAY 1 OF EACH 14-DAY CYCLE, LAST DOSE PRIOR TO SAE: 10-JUN-2015
     Route: 042
     Dates: start: 20150513
  6. TARGIN [Concomitant]
     Active Substance: NALOXONE HYDROCHLORIDE\OXYCODONE HYDROCHLORIDE
     Indication: BACK PAIN
     Dosage: 10 MILLIGRAM DAILY;
     Route: 048
     Dates: start: 20150429
  7. DEXAMETHASON [Concomitant]
     Active Substance: DEXAMETHASONE
     Indication: NAUSEA
     Dosage: 4 MILLIGRAM DAILY;
     Route: 048
     Dates: start: 20150520
  8. ABT-888 (VELIPARIB) (BLINDED) [Concomitant]
     Active Substance: VELIPARIB
     Indication: COLORECTAL CANCER
     Dosage: DAYS - 2 THROUGH 5 OF EACH 14-DAY CYCLE, LAST DOSE PRIOR TO SAE: 10-JUN-2015
     Route: 048
     Dates: start: 20150511
  9. 5-FLUOROURACIL [Suspect]
     Active Substance: FLUOROURACIL
     Dosage: UP OVER 46 HOURS, DAY 1 OF 14-DAY CYCLE (2400MG/M2)
     Route: 042
     Dates: start: 20150513
  10. LEUCOVORIN (FOLINIC ACID) [Concomitant]
     Active Substance: LEUCOVORIN
     Indication: COLORECTAL CANCER
     Route: 042
  11. NOVALGIN [Concomitant]
     Active Substance: METAMIZOLE SODIUM
     Indication: BACK PAIN
     Dosage: DAILY DOSE: 40 DROPS
     Route: 048
     Dates: start: 20150420

REACTIONS (1)
  - Dehydration [Recovered/Resolved]

NARRATIVE: CASE EVENT DATE: 20150616
